FAERS Safety Report 11041508 (Version 9)
Quarter: 2018Q1

REPORT INFORMATION
  Report Type: Report from Study
  Country: US (occurrence: US)
  Receive Date: 20150416
  Receipt Date: 20180105
  Transmission Date: 20180508
  Serious: Yes (Hospitalization, Other)
  Sender: FDA-Public Use
  Company Number: US-ACTELION-A-US2015-116092

PATIENT
  Age: 32 Year
  Sex: Female

DRUGS (8)
  1. SEROQUEL [Concomitant]
     Active Substance: QUETIAPINE FUMARATE
     Dosage: UNK
     Dates: start: 20090421
  2. ZAVESCA [Suspect]
     Active Substance: MIGLUSTAT
     Indication: GAUCHER^S DISEASE
     Dosage: 100 MG, TID
     Route: 048
     Dates: start: 20091223
  3. CALCIUM [Concomitant]
     Active Substance: CALCIUM
     Dosage: 500 MG, QD
     Dates: start: 20090421
  4. ZOLOFT [Concomitant]
     Active Substance: SERTRALINE HYDROCHLORIDE
     Dosage: UNK
     Dates: start: 20090421
  5. VITAMIN D [Concomitant]
     Active Substance: CHOLECALCIFEROL
     Dosage: UNK
     Dates: start: 20090421
  6. AMBIEN CR [Concomitant]
     Active Substance: ZOLPIDEM TARTRATE
     Dosage: UNK
     Dates: start: 20090421
  7. ZYRTEC-D [Concomitant]
     Active Substance: CETIRIZINE HYDROCHLORIDE\PSEUDOEPHEDRINE HYDROCHLORIDE
     Dosage: UNK
     Dates: start: 20090421
  8. ORTHO TRI CYCLEN [Concomitant]
     Active Substance: ETHINYL ESTRADIOL\NORGESTIMATE
     Dosage: 1 TAB DAILY
     Dates: start: 20090421

REACTIONS (14)
  - Renal failure [Unknown]
  - Escherichia test positive [Unknown]
  - Device dislocation [Unknown]
  - General physical health deterioration [Unknown]
  - Drug dose omission [Unknown]
  - Bladder disorder [Unknown]
  - Cystitis [Recovered/Resolved]
  - Bladder dilatation [Unknown]
  - Urinary tract infection [Unknown]
  - Bladder spasm [Unknown]
  - Bladder catheterisation [Unknown]
  - Gastrointestinal tube insertion [Unknown]
  - Pneumonia aspiration [Unknown]
  - Dehydration [Unknown]

NARRATIVE: CASE EVENT DATE: 20150406
